FAERS Safety Report 7865930-7 (Version None)
Quarter: 2011Q4

REPORT INFORMATION
  Report Type: 
  Country: None (occurrence: None)
  Receive Date: 20111028
  Receipt Date: 20110322
  Transmission Date: 20120403
  Serious: No
  Sender: FDA-Public Use
  Company Number: US-GLAXOSMITHKLINE-A0919434A

PATIENT
  Age: 47 Year
  Sex: Male

DRUGS (5)
  1. ZITHROMAX [Concomitant]
     Route: 048
     Dates: start: 20110321
  2. CHANTIX [Concomitant]
     Dosage: 1TAB TWICE PER DAY
     Route: 048
     Dates: start: 20110217
  3. ADVAIR DISKUS 100/50 [Suspect]
     Indication: PRODUCT USED FOR UNKNOWN INDICATION
     Dosage: 1PUFF TWICE PER DAY
     Route: 055
  4. ALBUTEROL [Concomitant]
     Dosage: 2PUFF SIX TIMES PER DAY
     Route: 055
     Dates: start: 20100823
  5. ROBITUSSIN A-C [Concomitant]
     Dosage: 1TSP SIX TIMES PER DAY
     Route: 048
     Dates: start: 20110217

REACTIONS (3)
  - PRODUCT QUALITY ISSUE [None]
  - DRUG INEFFECTIVE [None]
  - INHALATION THERAPY [None]
